FAERS Safety Report 4782561-6 (Version None)
Quarter: 2005Q3

REPORT INFORMATION
  Report Type: 
  Country: None (occurrence: None)
  Receive Date: 20050929
  Receipt Date: 20050314
  Transmission Date: 20060218
  Serious: Yes (Hospitalization)
  Sender: FDA-Public Use
  Company Number: 400592

PATIENT
  Sex: Male

DRUGS (4)
  1. COREG [Suspect]
     Route: 048
  2. FLOMAX [Concomitant]
  3. AMIODARONE [Concomitant]
  4. UNSPECIFIED MEDICATIONS [Concomitant]
     Indication: MENTAL DISORDER

REACTIONS (1)
  - BRADYCARDIA [None]
